FAERS Safety Report 11695374 (Version 1)
Quarter: 2015Q4

REPORT INFORMATION
  Report Type: Spontaneous
  Country: FR (occurrence: FR)
  Receive Date: 20151104
  Receipt Date: 20151104
  Transmission Date: 20160304
  Serious: Yes (Disabling)
  Sender: FDA-Public Use
  Company Number: FR-ROCHE-1654792

PATIENT
  Age: 86 Year
  Sex: Female
  Weight: 59 kg

DRUGS (5)
  1. LUCENTIS [Suspect]
     Active Substance: RANIBIZUMAB
     Dosage: LEFY EYE
     Route: 050
     Dates: start: 201507
  2. PARACETAMOL [Concomitant]
     Active Substance: ACETAMINOPHEN
  3. LUCENTIS [Suspect]
     Active Substance: RANIBIZUMAB
     Indication: PRODUCT USED FOR UNKNOWN INDICATION
     Dosage: LEFY EYE
     Route: 050
     Dates: start: 20150612
  4. LUCENTIS [Suspect]
     Active Substance: RANIBIZUMAB
     Dosage: LEFT EYE
     Route: 050
     Dates: start: 201508, end: 201508
  5. LEXOMIL [Concomitant]
     Active Substance: BROMAZEPAM

REACTIONS (1)
  - Retinal artery thrombosis [Not Recovered/Not Resolved]

NARRATIVE: CASE EVENT DATE: 20150831
